FAERS Safety Report 12274307 (Version 1)
Quarter: 2016Q2

REPORT INFORMATION
  Report Type: Spontaneous
  Country: US (occurrence: US)
  Receive Date: 20160415
  Receipt Date: 20160415
  Transmission Date: 20160815
  Serious: No
  Sender: FDA-Public Use
  Company Number: US-ALLERGAN-1510987US

PATIENT
  Sex: Female
  Weight: 55.78 kg

DRUGS (3)
  1. ESTRADIOL. [Concomitant]
     Active Substance: ESTRADIOL
  2. OXYBUTYNIN [Concomitant]
     Active Substance: OXYBUTYNIN
  3. LATISSE [Suspect]
     Active Substance: BIMATOPROST
     Indication: GROWTH OF EYELASHES
     Dosage: UNK
     Route: 003
     Dates: start: 201411

REACTIONS (2)
  - Product physical issue [Unknown]
  - Drug ineffective [Unknown]
